FAERS Safety Report 7607409-3 (Version None)
Quarter: 2011Q3

REPORT INFORMATION
  Report Type: 
  Country: None (occurrence: None)
  Receive Date: 20110713
  Receipt Date: 20110706
  Transmission Date: 20111222
  Serious: Yes (Other)
  Sender: FDA-Public Use
  Company Number: GXBR2011US03016

PATIENT
  Sex: Female
  Weight: 58.957 kg

DRUGS (2)
  1. ASPIRIN [Concomitant]
     Dosage: UNK MG, QD
  2. AMIODARONE HYDROCHLORIDE [Suspect]
     Indication: ATRIAL FIBRILLATION
     Dosage: UNK MG, UNK
     Route: 048
     Dates: end: 20110201

REACTIONS (3)
  - RETINAL VEIN OCCLUSION [None]
  - BLINDNESS UNILATERAL [None]
  - HYPOTHYROIDISM [None]
